FAERS Safety Report 7125136-6 (Version None)
Quarter: 2010Q4

REPORT INFORMATION
  Report Type: 
  Country: None (occurrence: None)
  Receive Date: 20101129
  Receipt Date: 20101021
  Transmission Date: 20110411
  Serious: Yes (Hospitalization, Other)
  Sender: FDA-Public Use
  Company Number: US-AMGEN-USASP2010001615

PATIENT

DRUGS (1)
  1. PROCRIT [Suspect]
     Indication: PRODUCT USED FOR UNKNOWN INDICATION
     Dosage: 10000 IU, Q2WK
     Route: 058
     Dates: start: 20090101, end: 20100201

REACTIONS (2)
  - AMNESIA [None]
  - CEREBROVASCULAR ACCIDENT [None]
